FAERS Safety Report 9069641 (Version 1)
Quarter: 2013Q1

REPORT INFORMATION
  Report Type: Report from Study
  Country: US (occurrence: US)
  Receive Date: 20130131
  Receipt Date: 20130131
  Transmission Date: 20140127
  Serious: No
  Sender: FDA-Public Use
  Company Number: US-ABBOTT-12P-163-0997650-00

PATIENT
  Age: 40 Year
  Sex: Female

DRUGS (5)
  1. HUMIRA [Suspect]
     Indication: CONNECTIVE TISSUE DISORDER
     Route: 058
     Dates: start: 20120930
  2. LEVOXYL [Concomitant]
     Indication: PRODUCT USED FOR UNKNOWN INDICATION
  3. METFORMIN [Concomitant]
     Indication: PRODUCT USED FOR UNKNOWN INDICATION
  4. PREVACID [Concomitant]
     Indication: PRODUCT USED FOR UNKNOWN INDICATION
  5. ALEVE [Concomitant]
     Indication: PRODUCT USED FOR UNKNOWN INDICATION

REACTIONS (3)
  - Off label use [Not Recovered/Not Resolved]
  - Pyrexia [Not Recovered/Not Resolved]
  - Oropharyngeal pain [Not Recovered/Not Resolved]
